FAERS Safety Report 7416796-0 (Version None)
Quarter: 2011Q2

REPORT INFORMATION
  Report Type: 
  Country: None (occurrence: None)
  Receive Date: 20110406
  Receipt Date: 20110324
  Transmission Date: 20111010
  Serious: Yes (Life-Threatening)
  Sender: FDA-Public Use
  Company Number: TCI2011A02210

PATIENT
  Age: 61 Year
  Sex: Female

DRUGS (7)
  1. GLUCOBAY [Concomitant]
  2. ACTOS [Suspect]
     Indication: TYPE 2 DIABETES MELLITUS
     Dosage: 15 MG (15 MG,1 D)
     Route: 048
     Dates: start: 20090821, end: 20100407
  3. DIURETICS [Concomitant]
  4. GLIMICRON (GLICLAZIDE) [Concomitant]
  5. HMG COA REDUCTASE INHIBITORS [Concomitant]
  6. ANGIOTENSIN II ANTAGONISTS [Concomitant]
  7. ASPIRIN [Concomitant]

REACTIONS (3)
  - HYDROCEPHALUS [None]
  - CEREBRAL HAEMORRHAGE [None]
  - INTRAVENTRICULAR HAEMORRHAGE [None]
